FAERS Safety Report 8047965-7 (Version None)
Quarter: 2012Q1

REPORT INFORMATION
  Report Type: 
  Country: None (occurrence: None)
  Receive Date: 20120116
  Receipt Date: 20120105
  Transmission Date: 20120608
  Serious: Yes (Other)
  Sender: FDA-Public Use
  Company Number: GR-BAXTER-2012BH000454

PATIENT
  Age: 43 Year
  Sex: Female
  Weight: 60 kg

DRUGS (3)
  1. LADININ [Concomitant]
     Indication: PRODUCT USED FOR UNKNOWN INDICATION
     Route: 048
     Dates: start: 20110501
  2. ULTRA-LEVURE [Concomitant]
     Indication: PRODUCT USED FOR UNKNOWN INDICATION
     Route: 048
     Dates: start: 20110501
  3. METRONIDAZOLE IN PLASTIC CONTAINER [Suspect]
     Indication: GASTROENTERITIS
     Route: 042
     Dates: start: 20110501, end: 20110503

REACTIONS (2)
  - COUGH [None]
  - CHEST PAIN [None]
